FAERS Safety Report 17151602 (Version 1)
Quarter: 2019Q4

REPORT INFORMATION
  Report Type: Spontaneous
  Country: US (occurrence: US)
  Receive Date: 20191212
  Receipt Date: 20191212
  Transmission Date: 20200122
  Serious: Yes (Other)
  Sender: FDA-Public Use
  Company Number: None

PATIENT
  Age: 67 Year
  Sex: Female
  Weight: 53.55 kg

DRUGS (6)
  1. VASCEPA [Concomitant]
     Active Substance: ICOSAPENT ETHYL
  2. VAGIFEM [Concomitant]
     Active Substance: ESTRADIOL
  3. CALCIUM WITH VITAMIN D [Concomitant]
     Active Substance: CALCIUM\VITAMIN D
  4. REPATHA [Suspect]
     Active Substance: EVOLOCUMAB
     Indication: HYPERCHOLESTEROLAEMIA
     Route: 058
     Dates: start: 20190718, end: 20191212
  5. PROLIA [Concomitant]
     Active Substance: DENOSUMAB
  6. ALLERGY MEDICATIONS [Concomitant]
     Active Substance: UNSPECIFIED INGREDIENT

REACTIONS (5)
  - Neck pain [None]
  - Back pain [None]
  - Muscle spasms [None]
  - Influenza like illness [None]
  - Musculoskeletal pain [None]

NARRATIVE: CASE EVENT DATE: 20191210
